FAERS Safety Report 9303175 (Version 2)
Quarter: 2013Q3

REPORT INFORMATION
  Report Type: Spontaneous
  Country: US (occurrence: US)
  Receive Date: 20130522
  Receipt Date: 20130701
  Transmission Date: 20140515
  Serious: No
  Sender: FDA-Public Use
  Company Number: US-PFIZER INC-2013154814

PATIENT
  Age: 56 Year
  Sex: Male

DRUGS (5)
  1. SEPTRA [Suspect]
     Dosage: UNK
  2. DOXYCYCLINE CALCIUM [Suspect]
     Dosage: UNK
  3. AMOXICILLIN [Suspect]
     Dosage: UNK
  4. ERYTHROMYCIN [Suspect]
     Dosage: UNK
  5. TENORETIC [Suspect]
     Dosage: UNK

REACTIONS (2)
  - Drug hypersensitivity [Unknown]
  - Rash [Unknown]
